FAERS Safety Report 16967747 (Version 2)
Quarter: 2019Q4

REPORT INFORMATION
  Report Type: Spontaneous
  Country: FR (occurrence: FR)
  Receive Date: 20191028
  Receipt Date: 20191220
  Transmission Date: 20200122
  Serious: Yes (Hospitalization)
  Sender: FDA-Public Use
  Company Number: FR-MYLANLABS-2019M1101555

PATIENT
  Age: 63 Year
  Sex: Female
  Weight: 72 kg

DRUGS (2)
  1. OPDIVO [Suspect]
     Active Substance: NIVOLUMAB
     Indication: BRONCHIAL CARCINOMA
     Dosage: 216 MILLIGRAM Q2W (216 MG, UNK)
     Route: 041
     Dates: start: 20190107, end: 20190121
  2. DICLOFENAC [Suspect]
     Active Substance: DICLOFENAC
     Indication: BONE PAIN
     Dosage: 50 MILLIGRAM, Q8H, (3 TIMES / DAY IF NEEDED)
     Route: 048
     Dates: start: 201901

REACTIONS (4)
  - General physical health deterioration [Not Recovered/Not Resolved]
  - Abdominal pain upper [Not Recovered/Not Resolved]
  - Vomiting [Not Recovered/Not Resolved]
  - Nausea [Not Recovered/Not Resolved]

NARRATIVE: CASE EVENT DATE: 20190120
